FAERS Safety Report 6921540-7 (Version None)
Quarter: 2010Q3

REPORT INFORMATION
  Report Type: 
  Country: None (occurrence: None)
  Receive Date: 20100805
  Receipt Date: 20100506
  Transmission Date: 20110219
  Serious: No
  Sender: FDA-Public Use
  Company Number: US-002029

PATIENT
  Sex: Male
  Weight: 64.0025 kg

DRUGS (1)
  1. DEGARELIX 80 MG [Suspect]
     Indication: PROSTATE CANCER
     Dosage: (80 MG TOTAL SUBCUTANEOUS)
     Route: 058
     Dates: start: 20100408

REACTIONS (1)
  - INJECTION SITE DISCOMFORT [None]
